FAERS Safety Report 9032971 (Version 1)
Quarter: 2013Q1

REPORT INFORMATION
  Report Type: Report from Study
  Country: CA (occurrence: CA)
  Receive Date: 20130128
  Receipt Date: 20130128
  Transmission Date: 20140127
  Serious: Yes (Other)
  Sender: FDA-Public Use
  Company Number: CA-JNJFOC-20121208927

PATIENT
  Age: 69 Year
  Sex: Female
  Weight: 58 kg

DRUGS (1)
  1. REMICADE [Suspect]
     Indication: CROHN^S DISEASE
     Dosage: 0,2,6 WEEKS
     Route: 042
     Dates: start: 20121203

REACTIONS (4)
  - Infection [Unknown]
  - Inflammation [Recovered/Resolved]
  - Oedema genital [Not Recovered/Not Resolved]
  - Genital pain [Not Recovered/Not Resolved]
